FAERS Safety Report 7104416-4 (Version None)
Quarter: 2010Q4

REPORT INFORMATION
  Report Type: 
  Country: None (occurrence: None)
  Receive Date: 20101116
  Receipt Date: 20101025
  Transmission Date: 20110411
  Serious: Yes (Hospitalization)
  Sender: FDA-Public Use
  Company Number: JP-AMGEN-JPNCT2010001450

PATIENT

DRUGS (11)
  1. ETANERCEPT [Suspect]
     Indication: RHEUMATOID ARTHRITIS
     Dosage: 25 MG, 2 TIMES/WK
     Route: 058
     Dates: start: 20080305, end: 20100420
  2. ETANERCEPT [Suspect]
     Dosage: 25 MG, 2 TIMES/WK
     Route: 058
     Dates: start: 20100506
  3. CIMETIDINE [Concomitant]
     Dosage: DOSE NOT PROVIDED
     Route: 048
  4. LOXONIN [Concomitant]
     Indication: RHEUMATOID ARTHRITIS
     Dosage: DOSE NOT PROVIDED
     Route: 048
  5. SOLON [Concomitant]
     Dosage: DOSE NOT PROVIDED
     Route: 048
  6. FOLIAMIN [Concomitant]
     Dosage: DOSE NOT PROVIDED
     Route: 048
  7. METHOTREXATE [Concomitant]
     Route: 048
     Dates: start: 20080905
  8. PREDNISOLONE [Concomitant]
     Indication: RHEUMATOID ARTHRITIS
     Route: 048
     Dates: start: 20071119, end: 20080403
  9. PREDNISOLONE [Concomitant]
     Route: 048
     Dates: start: 20080404
  10. VOLTAREN [Concomitant]
     Indication: RHEUMATOID ARTHRITIS
     Dosage: DOSE NOT PROVIDED
     Route: 048
  11. UNSPECIFIED HERBAL [Concomitant]

REACTIONS (2)
  - CONDITION AGGRAVATED [None]
  - RHEUMATOID ARTHRITIS [None]
